FAERS Safety Report 19657738 (Version 3)
Quarter: 2022Q1

REPORT INFORMATION
  Report Type: Spontaneous
  Country: FR (occurrence: FR)
  Receive Date: 20210804
  Receipt Date: 20220205
  Transmission Date: 20220423
  Serious: Yes (Hospitalization, Other)
  Sender: FDA-Public Use
  Company Number: FR-AFSSAPS-RN20212137

PATIENT
  Age: 30 Year
  Sex: Male
  Weight: 100.5 kg

DRUGS (12)
  1. ACYCLOVIR [Suspect]
     Active Substance: ACYCLOVIR
     Indication: Meningoencephalitis herpetic
     Dosage: UNK
     Route: 065
     Dates: start: 20210517, end: 20210519
  2. METRONIDAZOLE [Suspect]
     Active Substance: METRONIDAZOLE
     Indication: Brain abscess
     Dosage: 500 MG X 3 PAR JOUR
     Route: 065
     Dates: start: 20210526
  3. TEICOPLANIN [Suspect]
     Active Substance: TEICOPLANIN
     Indication: Product used for unknown indication
     Dosage: UNK
     Route: 065
     Dates: start: 20210518, end: 20210530
  4. SOLIRIS [Suspect]
     Active Substance: ECULIZUMAB
     Indication: Product used for unknown indication
     Dosage: 900 MG ON 05/20 THEN 1200 MG ON 05/28 AND 06/04
     Route: 065
     Dates: start: 20210520
  5. KEPPRA [Suspect]
     Active Substance: LEVETIRACETAM
     Indication: Product used for unknown indication
     Dosage: 2 DOSAGE FORM, ONCE A DAY
     Route: 065
     Dates: start: 20210520
  6. KEPPRA [Suspect]
     Active Substance: LEVETIRACETAM
     Dosage: 750 MILLIGRAM, TWO TIMES A DAY
     Route: 065
     Dates: start: 20210520
  7. CELLCEPT [Suspect]
     Active Substance: MYCOPHENOLATE MOFETIL
     Indication: Graft versus host disease
     Dosage: UNK
     Route: 065
     Dates: start: 202105, end: 202105
  8. MYCOPHENOLATE SODIUM [Suspect]
     Active Substance: MYCOPHENOLATE SODIUM
     Indication: Graft versus host disease
     Dosage: UNK
     Route: 065
     Dates: start: 202105, end: 20210615
  9. BACTRIM [Suspect]
     Active Substance: SULFAMETHOXAZOLE\TRIMETHOPRIM
     Indication: Brain abscess
     Dosage: UNK
     Route: 065
     Dates: start: 20210526
  10. LETERMOVIR [Suspect]
     Active Substance: LETERMOVIR
     Indication: Product used for unknown indication
     Dosage: 240 MILLIGRAM, ONCE A DAY
     Route: 065
     Dates: start: 20210512
  11. CEFOTAXIME [Suspect]
     Active Substance: CEFOTAXIME SODIUM
     Indication: Brain abscess
     Dosage: 4 GRAM, FOUR TIMES/DAY
     Route: 065
     Dates: start: 20210526
  12. POSACONAZOLE [Suspect]
     Active Substance: POSACONAZOLE
     Indication: Aspergillus infection
     Dosage: 300 MILLIGRAM, ONCE A DAY
     Route: 065
     Dates: start: 20210519

REACTIONS (4)
  - Thrombotic microangiopathy [Recovering/Resolving]
  - Brain abscess [Not Recovered/Not Resolved]
  - Neutropenia [Recovering/Resolving]
  - Off label use [Unknown]

NARRATIVE: CASE EVENT DATE: 20210516
